FAERS Safety Report 15658816 (Version 1)
Quarter: 2018Q4

REPORT INFORMATION
  Report Type: Spontaneous
  Country: KR (occurrence: KR)
  Receive Date: 20181126
  Receipt Date: 20181126
  Transmission Date: 20190205
  Serious: Yes (Hospitalization, Other)
  Sender: FDA-Public Use
  Company Number: KR-IMPAX LABORATORIES, LLC-2018-IPXL-03861

PATIENT
  Age: 48 Year
  Sex: Female

DRUGS (2)
  1. OMEPRAZOLE DELAYED RELEASE [Suspect]
     Active Substance: OMEPRAZOLE
     Dosage: UNK, INTERMITTENTLY
     Route: 065
  2. OMEPRAZOLE DELAYED RELEASE [Suspect]
     Active Substance: OMEPRAZOLE
     Indication: PEPTIC ULCER
     Dosage: UNK, DAILY
     Route: 065

REACTIONS (4)
  - Pancreatic neuroendocrine tumour [Unknown]
  - Parathyroid gland enlargement [Unknown]
  - Breast cancer [Unknown]
  - Nephrolithiasis [Unknown]
